FAERS Safety Report 12454408 (Version 1)
Quarter: 2016Q2

REPORT INFORMATION
  Report Type: Spontaneous
  Country: US (occurrence: US)
  Receive Date: 20160610
  Receipt Date: 20160610
  Transmission Date: 20160815
  Serious: No
  Sender: FDA-Public Use
  Company Number: US-BIOGEN-2016BI00238889

PATIENT
  Sex: Female

DRUGS (1)
  1. TECFIDERA [Suspect]
     Active Substance: DIMETHYL FUMARATE
     Indication: MULTIPLE SCLEROSIS
     Route: 048
     Dates: start: 20150901

REACTIONS (5)
  - Paralysis [Not Recovered/Not Resolved]
  - Hemianaesthesia [Not Recovered/Not Resolved]
  - Dysarthria [Not Recovered/Not Resolved]
  - General symptom [Not Recovered/Not Resolved]
  - Ill-defined disorder [Not Recovered/Not Resolved]
